FAERS Safety Report 13653891 (Version 1)
Quarter: 2017Q2

REPORT INFORMATION
  Report Type: Spontaneous
  Country: JP (occurrence: JP)
  Receive Date: 20170614
  Receipt Date: 20170614
  Transmission Date: 20170830
  Serious: Yes (Hospitalization)
  Sender: FDA-Public Use
  Company Number: JP-MYLANLABS-2017M1034076

PATIENT

DRUGS (2)
  1. CARBOPLATIN MYLAN [Suspect]
     Active Substance: CARBOPLATIN
     Indication: SMALL CELL LUNG CANCER
     Dosage: 250 MG, UNK
     Route: 065
     Dates: start: 201704
  2. LASTET [Concomitant]
     Active Substance: ETOPOSIDE
     Indication: SMALL CELL LUNG CANCER
     Dosage: ??
     Route: 065
     Dates: start: 201704

REACTIONS (1)
  - Emphysema [Recovered/Resolved]

NARRATIVE: CASE EVENT DATE: 201704
